FAERS Safety Report 9555170 (Version 2)
Quarter: 2013Q4

REPORT INFORMATION
  Report Type: Spontaneous
  Country: MT (occurrence: MT)
  Receive Date: 20130926
  Receipt Date: 20131011
  Transmission Date: 20140711
  Serious: Yes (Life-Threatening, Hospitalization, Other)
  Sender: FDA-Public Use
  Company Number: MT-ROCHE-1281567

PATIENT
  Age: 50 Year
  Sex: Male

DRUGS (1)
  1. XOLAIR [Suspect]
     Indication: ASTHMA
     Route: 058
     Dates: start: 20120117

REACTIONS (5)
  - Loss of consciousness [Unknown]
  - Chest discomfort [Unknown]
  - Fall [Recovered/Resolved]
  - Cough [Unknown]
  - Syncope [Recovered/Resolved]
